FAERS Safety Report 20043599 (Version 1)
Quarter: 2021Q4

REPORT INFORMATION
  Report Type: Other
  Country: DE (occurrence: DE)
  Receive Date: 20211108
  Receipt Date: 20211108
  Transmission Date: 20220303
  Serious: Yes (Other)
  Sender: FDA-Public Use
  Company Number: None

PATIENT
  Sex: Male
  Weight: 4.065 kg

DRUGS (4)
  1. DULOXETINE [Suspect]
     Active Substance: DULOXETINE
     Indication: Depression
     Dosage: 60 MICROGRAM, QD
     Route: 064
     Dates: start: 20200306, end: 20201114
  2. LEVOTHYROXINE [Suspect]
     Active Substance: LEVOTHYROXINE
     Indication: Hypothyroidism
     Dosage: 50 MILLIGRAM, QD (7.0 - 40.6. GESTATIONAL WEEK)
     Route: 064
     Dates: start: 20200424, end: 20201217
  3. INFLUSPLIT TETRA [Suspect]
     Active Substance: INFLUENZA VIRUS VACCINE
     Indication: Immunisation
     Dosage: UNK (BATCH NUMBER: AFLBA453AB)
     Route: 064
     Dates: start: 20201001, end: 20201001
  4. BOOSTRIX POLIO [Suspect]
     Active Substance: DIPHTHERIA AND TETANUS TOXOIDS AND ACELLULAR PERTUSSIS ADSORBED AND INACTIVATED POLIOVIRUS VACCINE
     Indication: Immunisation
     Dosage: UNK (BATCH NUMBER: AC39B139A)
     Route: 064
     Dates: start: 20201013, end: 20201013

REACTIONS (2)
  - Partial seizures [Unknown]
  - Foetal exposure during pregnancy [Unknown]
